FAERS Safety Report 25978757 (Version 1)
Quarter: 2025Q4

REPORT INFORMATION
  Report Type: Other
  Country: JP (occurrence: JP)
  Receive Date: 20251030
  Receipt Date: 20251030
  Transmission Date: 20260117
  Serious: Yes (Other)
  Sender: NOVITIUM PHARMA
  Company Number: JP-NOVITIUM PHARMA-000194

PATIENT
  Age: 51 Year
  Sex: Female

DRUGS (1)
  1. DEXAMETHASONE [Suspect]
     Active Substance: DEXAMETHASONE
     Indication: Colorectal cancer

REACTIONS (1)
  - Diabetic ketoacidosis [Unknown]
